FAERS Safety Report 6919361-4 (Version None)
Quarter: 2010Q3

REPORT INFORMATION
  Report Type: 
  Country: None (occurrence: None)
  Receive Date: 20100811
  Receipt Date: 20100804
  Transmission Date: 20110219
  Serious: Yes (Death)
  Sender: FDA-Public Use
  Company Number: A0874754A

PATIENT
  Age: 79 Year
  Sex: Female

DRUGS (1)
  1. SERETIDE [Suspect]
     Indication: PULMONARY FIBROSIS

REACTIONS (1)
  - MYOCARDIAL INFARCTION [None]
